FAERS Safety Report 4693794-1 (Version None)
Quarter: 2005Q2

REPORT INFORMATION
  Report Type: 
  Country: None (occurrence: None)
  Receive Date: 20050616
  Receipt Date: 20050607
  Transmission Date: 20051028
  Serious: Yes (Death, Hospitalization, Other)
  Sender: FDA-Public Use
  Company Number: 2005-06-0490

PATIENT
  Age: 27 Year
  Sex: Female

DRUGS (2)
  1. INTRON A [Suspect]
     Indication: CHRONIC MYELOID LEUKAEMIA
     Dosage: 10 MU QD
     Dates: start: 19950101
  2. HYDROXYUREA [Suspect]
     Indication: CHRONIC MYELOID LEUKAEMIA
     Dosage: 1 GM QD
     Dates: start: 19961001

REACTIONS (9)
  - ANAEMIA [None]
  - LEUKOPENIA [None]
  - MYELOFIBROSIS [None]
  - PULMONARY HAEMORRHAGE [None]
  - PULMONARY THROMBOSIS [None]
  - PULMONARY VASCULITIS [None]
  - SEPTIC SHOCK [None]
  - STEM CELL TRANSPLANT [None]
  - THERAPY NON-RESPONDER [None]
